FAERS Safety Report 6756500-2 (Version None)
Quarter: 2010Q2

REPORT INFORMATION
  Report Type: 
  Country: None (occurrence: None)
  Receive Date: 20100604
  Receipt Date: 20100526
  Transmission Date: 20101027
  Serious: Yes (Other)
  Sender: FDA-Public Use
  Company Number: B0629971A

PATIENT
  Sex: Female
  Weight: 57 kg

DRUGS (13)
  1. ZELITREX [Suspect]
     Dosage: 500MG SIX TIMES PER DAY
     Route: 048
     Dates: start: 20091001
  2. METHOTREXATE [Concomitant]
     Indication: RHEUMATOID ARTHRITIS
  3. COVERSYL [Concomitant]
  4. VALSARTAN [Concomitant]
  5. FOSAVANCE [Concomitant]
  6. LIPITOR [Concomitant]
  7. PARACETAMOL [Concomitant]
  8. LASIX [Concomitant]
  9. FOLIC ACID [Concomitant]
  10. PREDNISONE [Concomitant]
  11. TRIANAL [Concomitant]
  12. ASAFLOW [Concomitant]
  13. OXAZEPAM [Concomitant]

REACTIONS (2)
  - ANAEMIA MACROCYTIC [None]
  - RENAL FAILURE [None]
